FAERS Safety Report 10678828 (Version 1)
Quarter: 2014Q4

REPORT INFORMATION
  Report Type: Spontaneous
  Country: US (occurrence: US)
  Receive Date: 20141229
  Receipt Date: 20141229
  Transmission Date: 20150529
  Serious: No
  Sender: FDA-Public Use
  Company Number: US-PFIZER INC-2014356357

PATIENT

DRUGS (1)
  1. HYDROCORTISONE CIPIONATE [Suspect]
     Active Substance: HYDROCORTISONE CYPIONATE
     Indication: ADRENAL INSUFFICIENCY
     Dosage: UNK

REACTIONS (2)
  - Drug ineffective [Unknown]
  - Intentional product use issue [Unknown]
